FAERS Safety Report 5085193-8 (Version None)
Quarter: 2006Q3

REPORT INFORMATION
  Report Type: 
  Country: None (occurrence: None)
  Receive Date: 20060727
  Receipt Date: 20051128
  Transmission Date: 20061208
  Serious: Yes (Hospitalization)
  Sender: FDA-Public Use
  Company Number: US-JNJFOC-20051200879

PATIENT
  Age: 43 Year
  Sex: Female

DRUGS (2)
  1. NIZORAL [Suspect]
     Indication: NEOPLASM MALIGNANT
     Dosage: 400 MG, ORAL
     Route: 048
     Dates: start: 20040323, end: 20040326
  2. IXABEPILONE (ALL OTHER THERAPEUTIC PRODUCTS) [Suspect]
     Indication: NEOPLASM MALIGNANT
     Dosage: 60 MG, INTRAVENOUS
     Route: 042
     Dates: start: 20040324, end: 20040324

REACTIONS (1)
  - FATIGUE [None]
